FAERS Safety Report 13012968 (Version 1)
Quarter: 2016Q4

REPORT INFORMATION
  Report Type: Spontaneous
  Country: US (occurrence: US)
  Receive Date: 20161209
  Receipt Date: 20161209
  Transmission Date: 20170207
  Serious: Yes (Other)
  Sender: FDA-Public Use
  Company Number: US-SAOL THERAPEUTICS-2016SAO01191

PATIENT
  Sex: Female

DRUGS (4)
  1. BACLOFEN. [Suspect]
     Active Substance: BACLOFEN
     Indication: RADICULAR PAIN
  2. HYDROMORPHONE [Suspect]
     Active Substance: HYDROMORPHONE
     Dosage: 16.478 MG, \DAY
  3. BACLOFEN. [Suspect]
     Active Substance: BACLOFEN
     Indication: PAIN
     Dosage: 148.30 ?G, \DAY
  4. BACLOFEN. [Suspect]
     Active Substance: BACLOFEN
     Indication: SPINAL OPERATION

REACTIONS (2)
  - Implant site infection [Unknown]
  - Off label use [Unknown]

NARRATIVE: CASE EVENT DATE: 2009
